FAERS Safety Report 22377606 (Version 3)
Quarter: 2023Q4

REPORT INFORMATION
  Report Type: Spontaneous
  Country: ES (occurrence: ES)
  Receive Date: 20230529
  Receipt Date: 20231206
  Transmission Date: 20240109
  Serious: No
  Sender: FDA-Public Use
  Company Number: ES-JNJFOC-20230562562

PATIENT
  Age: 7 Month

DRUGS (1)
  1. MINOXIDIL [Suspect]
     Active Substance: MINOXIDIL
     Indication: Accidental exposure to product
     Route: 065
     Dates: start: 2022, end: 2022

REACTIONS (3)
  - Exposure via unknown route [Recovered/Resolved]
  - Accidental exposure to product by child [Recovered/Resolved]
  - Hypertrichosis [Recovered/Resolved]

NARRATIVE: CASE EVENT DATE: 20220101
